FAERS Safety Report 7684636-0 (Version None)
Quarter: 2011Q3

REPORT INFORMATION
  Report Type: 
  Country: None (occurrence: None)
  Receive Date: 20110816
  Receipt Date: 20090624
  Transmission Date: 20111222
  Serious: No
  Sender: FDA-Public Use
  Company Number: 2009BI019539

PATIENT
  Sex: Female

DRUGS (4)
  1. SEIZURE MEDICATION [Concomitant]
     Indication: PRODUCT USED FOR UNKNOWN INDICATION
  2. TYSABRI [Suspect]
     Indication: MULTIPLE SCLEROSIS
     Route: 042
     Dates: start: 20080501, end: 20090320
  3. TYSABRI [Suspect]
     Route: 042
     Dates: start: 20080501, end: 20101102
  4. TYSABRI [Suspect]
     Route: 042
     Dates: start: 20090512

REACTIONS (6)
  - DEPRESSION [None]
  - BREAST MASS [None]
  - PARAESTHESIA [None]
  - ASTHENIA [None]
  - FATIGUE [None]
  - HYPOAESTHESIA [None]
